FAERS Safety Report 7043072-0 (Version None)
Quarter: 2010Q4

REPORT INFORMATION
  Report Type: 
  Country: None (occurrence: None)
  Receive Date: 20101013
  Receipt Date: 20101001
  Transmission Date: 20110411
  Serious: Yes (Hospitalization, Other)
  Sender: FDA-Public Use
  Company Number: US-ELI_LILLY_AND_COMPANY-US201005006587

PATIENT
  Sex: Female

DRUGS (11)
  1. FORTEO [Suspect]
     Indication: OSTEOPOROSIS
     Dosage: 20 UG, DAILY (1/D)
  2. HYDROCORTISONE [Concomitant]
  3. ACIPHEX [Concomitant]
  4. LISINOPRIL [Concomitant]
  5. MIRAPEX [Concomitant]
  6. XANAX [Concomitant]
  7. PERCOCET [Concomitant]
  8. OXYCONTIN [Concomitant]
  9. CALTRATE [Concomitant]
  10. ASCORBIC ACID [Concomitant]
  11. MULTI-VITAMIN [Concomitant]

REACTIONS (8)
  - ARTHRALGIA [None]
  - BLOOD POTASSIUM DECREASED [None]
  - CELLULITIS [None]
  - FLUID RETENTION [None]
  - MALAISE [None]
  - PAIN [None]
  - SWELLING [None]
  - URINARY RETENTION [None]
